FAERS Safety Report 13862043 (Version 1)
Quarter: 2017Q3

REPORT INFORMATION
  Report Type: Report from Study
  Country: FR (occurrence: FR)
  Receive Date: 20170812
  Receipt Date: 20170812
  Transmission Date: 20171127
  Serious: Yes (Hospitalization)
  Sender: FDA-Public Use
  Company Number: FR-ROCHE-1971964

PATIENT
  Age: 84 Year
  Sex: Female

DRUGS (8)
  1. VALSARTAN. [Concomitant]
     Active Substance: VALSARTAN
     Route: 065
  2. AMLOR [Concomitant]
     Active Substance: AMLODIPINE BESYLATE
     Route: 065
  3. CARBOPLATIN. [Suspect]
     Active Substance: CARBOPLATIN
     Indication: OVARIAN CANCER
     Dosage: ON 06/04/2017, CARBOPLATIN WAS TEMPORARILY STOPPED.?DAILY DOSE 0 MG CYCLICAL.
     Route: 042
     Dates: start: 20161207, end: 20170406
  4. CARBOPLATIN. [Suspect]
     Active Substance: CARBOPLATIN
     Dosage: ON 31/05/2017, CARBOPLATIN WAS REINTRODUCED, SAE DID NOT RECURR AND IS ONGOING.?DAILY DOSE 0 MG CYCL
     Route: 042
     Dates: start: 20170531
  5. BEVACIZUMAB. [Suspect]
     Active Substance: BEVACIZUMAB
     Dosage: UNTIL DISEASE PROGRESSION.?(15 MG/KG, DAY 1)
     Route: 042
  6. BLINDED ATEZOLIZUMAB [Suspect]
     Active Substance: ATEZOLIZUMAB
     Indication: OVARIAN CANCER
     Route: 065
  7. BEVACIZUMAB. [Suspect]
     Active Substance: BEVACIZUMAB
     Indication: OVARIAN CANCER
     Dosage: ON 23/MAR/2017, PATIENT RECEIVED LAST DOSE OF BEVACIZUMAB BEFORE THE EVENT.?ON 06/APR/2017, BEVACIZU
     Route: 042
     Dates: start: 20161207, end: 20170406
  8. DOXORUBICIN [Suspect]
     Active Substance: DOXORUBICIN
     Indication: OVARIAN CANCER
     Dosage: DAILY DOSE 0 MG/M2 CYCLICAL
     Route: 042
     Dates: start: 20161207, end: 20170406

REACTIONS (1)
  - Acute pulmonary oedema [Recovered/Resolved]

NARRATIVE: CASE EVENT DATE: 20170325
